FAERS Safety Report 22191696 (Version 1)
Quarter: 2023Q2

REPORT INFORMATION
  Report Type: Spontaneous
  Country: US (occurrence: None)
  Receive Date: 20230407
  Receipt Date: 20230407
  Transmission Date: 20230722
  Serious: Yes (Other)
  Sender: FDA-Public Use
  Company Number: None

PATIENT
  Sex: 0

DRUGS (1)
  1. SYSTANE COMPLETE [Suspect]
     Active Substance: PROPYLENE GLYCOL
     Dosage: OTHER FREQUENCY : EVERY 1 HR;?
     Route: 047

REACTIONS (12)
  - Conjunctivitis [None]
  - Scleral disorder [None]
  - Inflammation [None]
  - Eye swelling [None]
  - Suspected product contamination [None]
  - Eye pruritus [None]
  - Vision blurred [None]
  - Impaired driving ability [None]
  - Asthenia [None]
  - Nausea [None]
  - Photophobia [None]
  - Product quality issue [None]

NARRATIVE: CASE EVENT DATE: 20230127
